FAERS Safety Report 8035469-7 (Version None)
Quarter: 2012Q1

REPORT INFORMATION
  Report Type: 
  Country: None (occurrence: None)
  Receive Date: 20120110
  Receipt Date: 20120110
  Transmission Date: 20120608
  Serious: Yes (Other)
  Sender: FDA-Public Use
  Company Number: None

PATIENT
  Age: 51 Year
  Sex: Female

DRUGS (1)
  1. APIDRA [Suspect]
     Dosage: USE 80 UNITS PER DAY

REACTIONS (1)
  - DIABETES MELLITUS INADEQUATE CONTROL [None]
